FAERS Safety Report 24624354 (Version 1)
Quarter: 2024Q4

REPORT INFORMATION
  Report Type: Spontaneous
  Country: US (occurrence: None)
  Receive Date: 20241114
  Receipt Date: 20241114
  Transmission Date: 20250114
  Serious: No
  Sender: Public
  Company Number: None

PATIENT
  Age: 43 Year
  Sex: Female
  Weight: 69.4 kg

DRUGS (1)
  1. TALTZ [Suspect]
     Active Substance: IXEKIZUMAB
     Indication: Psoriasis
     Dosage: OTHER FREQUENCY : ATWK12THENEVERY4WKSASDIRECTED;?
     Dates: start: 202303

REACTIONS (2)
  - Infection [None]
  - Urinary tract infection [None]
